FAERS Safety Report 4266975-9 (Version None)
Quarter: 2004Q1

REPORT INFORMATION
  Report Type: 
  Country: None (occurrence: None)
  Receive Date: 20040108
  Receipt Date: 20030212
  Transmission Date: 20041129
  Serious: Yes (Hospitalization)
  Sender: FDA-Public Use
  Company Number: US-BRISTOL-MYERS SQUIBB COMPANY-12184735

PATIENT
  Age: 37 Year
  Sex: Female
  Weight: 63 kg

DRUGS (1)
  1. CORGARD [Suspect]
     Indication: HYPERTENSION
     Dosage: DURATION: MANY YRS; INTERRUPTED 10FEB TO 20FEB03; CONTINUED @ 20 MG 2X/DAY 20FEB TO 01MAR03
     Route: 048
     Dates: start: 19980101, end: 20030301

REACTIONS (2)
  - DRUG INEFFECTIVE [None]
  - HYPERTENSION [None]
